FAERS Safety Report 7148873-6 (Version None)
Quarter: 2010Q4

REPORT INFORMATION
  Report Type: 
  Country: None (occurrence: None)
  Receive Date: 20101209
  Receipt Date: 20101201
  Transmission Date: 20110411
  Serious: Yes (Other)
  Sender: FDA-Public Use
  Company Number: GB-PFIZER INC-2010162270

PATIENT

DRUGS (1)
  1. SUNITINIB MALATE [Suspect]
     Dosage: 50 MG, UNK

REACTIONS (3)
  - GASTROINTESTINAL DISORDER [None]
  - HAEMATURIA [None]
  - RENAL HAEMORRHAGE [None]
